FAERS Safety Report 7305108-9 (Version None)
Quarter: 2011Q1

REPORT INFORMATION
  Report Type: 
  Country: None (occurrence: None)
  Receive Date: 20110222
  Receipt Date: 20110209
  Transmission Date: 20110831
  Serious: Yes (Other)
  Sender: FDA-Public Use
  Company Number: CH-SANOFI-AVENTIS-2011SA009466

PATIENT
  Age: 65 Year
  Sex: Female

DRUGS (20)
  1. GENTAMICIN [Concomitant]
     Indication: ENDOCARDITIS
     Route: 042
  2. VANCOMYCIN [Suspect]
     Route: 042
  3. VANCOMYCIN [Suspect]
     Indication: OSTEOMYELITIS
     Route: 042
  4. VANCOMYCIN [Suspect]
     Route: 042
  5. GENTAMICIN [Concomitant]
     Indication: OSTEOMYELITIS
     Route: 042
  6. GENTAMICIN [Concomitant]
     Route: 042
  7. GENTAMICIN [Concomitant]
     Route: 042
  8. SULFAMETHOXAZOLE AND TRIMETHOPRIM [Concomitant]
     Indication: ENDOCARDITIS
     Route: 048
  9. PHENPROCOUMON [Concomitant]
     Indication: ANTICOAGULANT THERAPY
     Route: 065
  10. ACETYLSALICYLIC ACID [Concomitant]
     Route: 065
  11. METOPROLOL [Concomitant]
     Dosage: ONCE DAILY
     Route: 065
  12. ACETYLSALICYLIC ACID [Concomitant]
     Indication: ANTICOAGULANT THERAPY
     Route: 065
  13. ACETYLSALICYLIC ACID [Concomitant]
     Dosage: ONCE DAILY
     Route: 065
  14. SULFAMETHOXAZOLE AND TRIMETHOPRIM [Concomitant]
     Indication: OSTEOMYELITIS
     Route: 048
  15. VANCOMYCIN [Suspect]
     Indication: ENDOCARDITIS
     Route: 042
  16. RIFAMPICIN [Suspect]
     Indication: OSTEOMYELITIS
     Dosage: FREQUENCY: ONCE DAILY
     Route: 048
  17. RIFAMPICIN [Suspect]
     Indication: ENDOCARDITIS
     Dosage: FREQUENCY: ONCE DAILY
     Route: 048
  18. METOPROLOL [Concomitant]
     Dosage: ONCE DAILY
     Route: 065
  19. PERINDOPRIL [Concomitant]
     Dosage: ONCE DAILY
     Route: 065
  20. PERINDOPRIL [Concomitant]
     Dosage: ONCE DAILY
     Route: 065

REACTIONS (4)
  - EOSINOPHIL COUNT INCREASED [None]
  - PYREXIA [None]
  - DRUG RASH WITH EOSINOPHILIA AND SYSTEMIC SYMPTOMS [None]
  - RASH GENERALISED [None]
